FAERS Safety Report 5975372-7 (Version None)
Quarter: 2008Q4

REPORT INFORMATION
  Report Type: 
  Country: None (occurrence: None)
  Receive Date: 20081202
  Receipt Date: 20081121
  Transmission Date: 20090506
  Serious: Yes (Hospitalization)
  Sender: FDA-Public Use
  Company Number: BE-AMGEN-US321032

PATIENT
  Age: 69 Year
  Sex: Female

DRUGS (5)
  1. ENBREL [Suspect]
     Indication: RHEUMATOID ARTHRITIS
     Route: 058
     Dates: start: 20021004, end: 20081001
  2. MAGALDRATE [Concomitant]
     Indication: REFLUX OESOPHAGITIS
     Route: 065
  3. NEXIUM [Concomitant]
     Indication: REFLUX OESOPHAGITIS
     Route: 065
  4. LEDERTREXATE [Concomitant]
     Indication: RHEUMATOID ARTHRITIS
     Route: 065
  5. ELTHYRONE [Concomitant]
     Indication: HYPOTHYROIDISM
     Route: 065

REACTIONS (4)
  - DEMENTIA [None]
  - DISORIENTATION [None]
  - EPILEPSY [None]
  - LUMBAR VERTEBRAL FRACTURE [None]
